FAERS Safety Report 18171341 (Version 3)
Quarter: 2020Q3

REPORT INFORMATION
  Report Type: Report from Study
  Country: None (occurrence: US)
  Receive Date: 20200819
  Receipt Date: 20200901
  Transmission Date: 20201103
  Serious: Yes (Hospitalization)
  Sender: FDA-Public Use
  Company Number: US-ABBVIE-20P-163-3424476-00

PATIENT
  Age: 65 Year
  Sex: Male
  Weight: 112.3 kg

DRUGS (13)
  1. OBINUTUZUMAB. [Concomitant]
     Active Substance: OBINUTUZUMAB
     Dosage: DAY 2, CYCLE 1
     Route: 042
  2. OBINUTUZUMAB. [Concomitant]
     Active Substance: OBINUTUZUMAB
     Dosage: D15, CYCLE 1
     Route: 042
  3. OBINUTUZUMAB. [Concomitant]
     Active Substance: OBINUTUZUMAB
     Dosage: D1, CYCLE 2?6
     Route: 042
     Dates: end: 20200227
  4. VENETOCLAX. [Suspect]
     Active Substance: VENETOCLAX
     Route: 048
     Dates: end: 20200505
  5. IBRUTINIB [Suspect]
     Active Substance: IBRUTINIB
     Indication: CHRONIC LYMPHOCYTIC LEUKAEMIA
     Dosage: D1?28, CYCLES 1?19
     Route: 048
     Dates: start: 20190925, end: 20200505
  6. VENETOCLAX. [Suspect]
     Active Substance: VENETOCLAX
     Dosage: D1?28, CYCLES 4?14
     Route: 048
  7. OBINUTUZUMAB. [Concomitant]
     Active Substance: OBINUTUZUMAB
     Indication: CHRONIC LYMPHOCYTIC LEUKAEMIA
     Dosage: DAY 1, CYCLE 1
     Route: 042
     Dates: start: 20190925
  8. BUSPIRONE [Concomitant]
     Active Substance: BUSPIRONE HYDROCHLORIDE
     Indication: PRODUCT USED FOR UNKNOWN INDICATION
     Route: 065
  9. VENETOCLAX. [Suspect]
     Active Substance: VENETOCLAX
     Indication: CHRONIC LYMPHOCYTIC LEUKAEMIA
     Dosage: DAYS 1?7 CYCLE 3
     Route: 048
     Dates: start: 20200423
  10. VENETOCLAX. [Suspect]
     Active Substance: VENETOCLAX
     Dosage: DAYS 8?14, CYCLE 3
     Route: 048
  11. VENETOCLAX. [Suspect]
     Active Substance: VENETOCLAX
     Dosage: DAYS 22?28, CYCLE 3
     Route: 048
  12. OBINUTUZUMAB. [Concomitant]
     Active Substance: OBINUTUZUMAB
     Dosage: D8, CYCLE 1
     Route: 042
  13. VENETOCLAX. [Suspect]
     Active Substance: VENETOCLAX
     Dosage: DAYS 15?21, CYCLE 3
     Route: 048

REACTIONS (4)
  - White blood cell count decreased [Not Recovered/Not Resolved]
  - Lymphocyte count decreased [Recovered/Resolved]
  - Mental status changes [Recovered/Resolved with Sequelae]
  - Neutrophil count decreased [Not Recovered/Not Resolved]

NARRATIVE: CASE EVENT DATE: 20200505
